FAERS Safety Report 4872516-5 (Version None)
Quarter: 2005Q4

REPORT INFORMATION
  Report Type: 
  Country: None (occurrence: None)
  Receive Date: 20051230
  Receipt Date: 20051230
  Transmission Date: 20060501
  Serious: Yes (Hospitalization)
  Sender: FDA-Public Use
  Company Number: None

PATIENT
  Age: 82 Year
  Sex: Female
  Weight: 72.7 kg

DRUGS (14)
  1. WARFARIN SODIUM [Suspect]
     Indication: DEEP VEIN THROMBOSIS
     Dosage: 2.5MG   DAILY    PO
     Route: 048
  2. BISACODYL [Concomitant]
  3. TRIAMCINOLONE ACETONIDE [Concomitant]
  4. DONEPEZIL HCL [Concomitant]
  5. ARTIFICIAL TEARS [Concomitant]
  6. METHYLCELLULOSE [Concomitant]
  7. CITALOPRAM HYDROBROMIDE [Concomitant]
  8. FUROSEMIDE [Concomitant]
  9. SYNTHROID [Concomitant]
  10. LISINOPRIL [Concomitant]
  11. METOPROLOL TARTRATE [Concomitant]
  12. OXYBUTYNIN CHLORIDE [Concomitant]
  13. RANITIDINE HCL [Concomitant]
  14. SIMVASTATIN [Concomitant]

REACTIONS (2)
  - INCORRECT DOSE ADMINISTERED [None]
  - INTERNATIONAL NORMALISED RATIO INCREASED [None]
